FAERS Safety Report 25108730 (Version 2)
Quarter: 2025Q1

REPORT INFORMATION
  Report Type: Spontaneous
  Country: CA (occurrence: CA)
  Receive Date: 20250322
  Receipt Date: 20250326
  Transmission Date: 20250409
  Serious: Yes (Other)
  Sender: CELLTRION
  Company Number: CA-PFIZER INC-202400276294

PATIENT

DRUGS (7)
  1. COLESEVELAM [Concomitant]
     Active Substance: COLESEVELAM
     Indication: Biliary tract disorder
  2. COLESEVELAM [Concomitant]
     Active Substance: COLESEVELAM
  3. REMICADE [Concomitant]
     Active Substance: INFLIXIMAB
     Dates: start: 20240116, end: 20240926
  4. TYLENOL [Concomitant]
     Active Substance: ACETAMINOPHEN
     Indication: Crohn^s disease
  5. TYLENOL [Concomitant]
     Active Substance: ACETAMINOPHEN
  6. INFLECTRA [Suspect]
     Active Substance: INFLIXIMAB-DYYB
     Indication: Crohn^s disease
     Route: 042
     Dates: start: 20250116
  7. INFLECTRA [Suspect]
     Active Substance: INFLIXIMAB-DYYB
     Route: 042
     Dates: start: 20250313

REACTIONS (5)
  - Frequent bowel movements [Unknown]
  - Drug ineffective [Unknown]
  - Off label use [Unknown]
  - Off label use [Unknown]
  - Intentional product use issue [Unknown]

NARRATIVE: CASE EVENT DATE: 20250116
